FAERS Safety Report 18191160 (Version 1)
Quarter: 2020Q3

REPORT INFORMATION
  Report Type: Spontaneous
  Country: US (occurrence: US)
  Receive Date: 20200824
  Receipt Date: 20200824
  Transmission Date: 20201103
  Serious: No
  Sender: FDA-Public Use
  Company Number: US-ROCHE-2623206

PATIENT
  Sex: Female

DRUGS (1)
  1. ALECENSA [Suspect]
     Active Substance: ALECTINIB HYDROCHLORIDE
     Indication: METASTASES TO LUNG
     Route: 065
     Dates: start: 20200507

REACTIONS (5)
  - Decreased appetite [Unknown]
  - Dyspnoea [Unknown]
  - Product dose omission issue [Unknown]
  - Nausea [Unknown]
  - Weight increased [Unknown]
